FAERS Safety Report 9431487 (Version 2)
Quarter: 2013Q3

REPORT INFORMATION
  Report Type: Report from Study
  Country: US (occurrence: US)
  Receive Date: 20130730
  Receipt Date: 20130802
  Transmission Date: 20140515
  Serious: Yes (Hospitalization)
  Sender: FDA-Public Use
  Company Number: US-ASTELLAS-2012US007314

PATIENT
  Age: 15 Year
  Sex: Male
  Weight: 56 kg

DRUGS (8)
  1. TACROLIMUS OINTMENT [Suspect]
     Indication: DERMATITIS ATOPIC
     Dosage: 0.1 %, WEEKLY
     Route: 061
     Dates: start: 20020520, end: 2006
  2. ALBUTEROL                          /00139501/ [Concomitant]
     Indication: ASTHMA
     Dosage: 4 PUFFS, Q4 HOURS PRN
     Route: 055
     Dates: start: 2000
  3. FLUTICASONE W/SALMETEROL [Concomitant]
     Indication: ASTHMA
     Dosage: 115/21MCG, 2 PUFFS BID
     Route: 055
     Dates: start: 20090212
  4. LEVOCETIRIZINE [Concomitant]
     Indication: ASTHMA
     Dosage: 5 MG, UID/QD
     Route: 048
     Dates: start: 20090212
  5. MOMETASONE FUROATE [Concomitant]
     Indication: HYPERSENSITIVITY
     Dosage: 50 MCG, BID PRN
     Route: 045
     Dates: start: 20090522
  6. MOMETASONE [Concomitant]
     Indication: DERMATITIS ATOPIC
     Dosage: 0.1 %, PRN
     Route: 061
     Dates: start: 20090522
  7. PREDNISONE [Concomitant]
     Indication: ASTHMA
     Dosage: 60 MG, UID/QD
     Route: 048
     Dates: start: 20120529
  8. RANITIDINE [Concomitant]
     Indication: HYPERSENSITIVITY
     Dosage: UNK
     Route: 065
     Dates: start: 20080510

REACTIONS (5)
  - Off label use [Unknown]
  - Anaphylactic reaction [Recovered/Resolved]
  - Asthma [Recovered/Resolved]
  - Asthma [Recovered/Resolved]
  - Anaphylactic reaction [Recovered/Resolved]
